FAERS Safety Report 10208535 (Version 4)
Quarter: 2015Q3

REPORT INFORMATION
  Report Type: Spontaneous
  Country: US (occurrence: US)
  Receive Date: 20140530
  Receipt Date: 20150817
  Transmission Date: 20151125
  Serious: No
  Sender: FDA-Public Use
  Company Number: US-GILEAD-2014-0103823

PATIENT
  Age: 40 Year
  Sex: Female
  Weight: 50 kg

DRUGS (7)
  1. LORATADINE. [Concomitant]
     Active Substance: LORATADINE
  2. ASPIRIN. [Concomitant]
     Active Substance: ASPIRIN
  3. PROVERA [Concomitant]
     Active Substance: MEDROXYPROGESTERONE ACETATE
  4. SERTRALINE [Concomitant]
     Active Substance: SERTRALINE HYDROCHLORIDE
     Dosage: 25 MG, UNK
     Route: 048
  5. LETAIRIS [Suspect]
     Active Substance: AMBRISENTAN
     Indication: PULMONARY HYPERTENSION
     Dosage: 5 MG, UNK
     Route: 065
     Dates: start: 20140501, end: 20140528
  6. LETAIRIS [Suspect]
     Active Substance: AMBRISENTAN
     Indication: RIGHT-TO-LEFT CARDIAC SHUNT
  7. ALLOPURINOL. [Concomitant]
     Active Substance: ALLOPURINOL
     Dosage: 300 MG, UNK
     Route: 048

REACTIONS (2)
  - Mental status changes [Unknown]
  - Fatigue [Unknown]

NARRATIVE: CASE EVENT DATE: 201406
